FAERS Safety Report 16801793 (Version 2)
Quarter: 2019Q3

REPORT INFORMATION
  Report Type: Report from Study
  Country: FR (occurrence: FR)
  Receive Date: 20190912
  Receipt Date: 20190919
  Transmission Date: 20191005
  Serious: Yes (Hospitalization)
  Sender: FDA-Public Use
  Company Number: FR-ROCHE-2399097

PATIENT
  Age: 67 Year
  Sex: Female

DRUGS (2)
  1. TRASTUZUMAB EMTANSINE [Suspect]
     Active Substance: ADO-TRASTUZUMAB EMTANSINE
     Indication: LUNG NEOPLASM MALIGNANT
     Route: 065
     Dates: start: 20190521, end: 20190814
  2. PERTUZUMAB. [Suspect]
     Active Substance: PERTUZUMAB
     Indication: LUNG NEOPLASM MALIGNANT
     Route: 065
     Dates: start: 20190521, end: 20190814

REACTIONS (1)
  - Pleural infection [Not Recovered/Not Resolved]

NARRATIVE: CASE EVENT DATE: 20190814
